FAERS Safety Report 22855915 (Version 3)
Quarter: 2023Q4

REPORT INFORMATION
  Report Type: Spontaneous
  Country: US (occurrence: US)
  Receive Date: 20230823
  Receipt Date: 20231012
  Transmission Date: 20240109
  Serious: No
  Sender: FDA-Public Use
  Company Number: US-JNJFOC-20230847358

PATIENT
  Age: 34 Year
  Sex: Female
  Weight: 81.266 kg

DRUGS (1)
  1. TREMFYA [Suspect]
     Active Substance: GUSELKUMAB
     Indication: Psoriasis
     Route: 058

REACTIONS (3)
  - Inappropriate schedule of product administration [Unknown]
  - Product complaint [Unknown]
  - Needle issue [Unknown]

NARRATIVE: CASE EVENT DATE: 20230820
